FAERS Safety Report 18339086 (Version 1)
Quarter: 2020Q3

REPORT INFORMATION
  Report Type: Spontaneous
  Country: US (occurrence: US)
  Receive Date: 20200930
  Receipt Date: 20200930
  Transmission Date: 20201103
  Serious: Yes (Life-Threatening, Hospitalization, Other)
  Sender: FDA-Public Use
  Company Number: None

PATIENT
  Age: 20 Year
  Sex: Male

DRUGS (1)
  1. QUETIAPINE (QUETIAPINE FUMARATE 100MG TAB) [Suspect]
     Active Substance: QUETIAPINE FUMARATE
     Route: 048
     Dates: start: 20200717, end: 20200717

REACTIONS (2)
  - Syncope [None]
  - Hypotension [None]

NARRATIVE: CASE EVENT DATE: 20200716
